FAERS Safety Report 17385720 (Version 2)
Quarter: 2021Q1

REPORT INFORMATION
  Report Type: Spontaneous
  Country: US (occurrence: US)
  Receive Date: 20200206
  Receipt Date: 20210201
  Transmission Date: 20210419
  Serious: Yes (Other)
  Sender: FDA-Public Use
  Company Number: US-ABBVIE-19K-163-2918487-00

PATIENT
  Age: 75 Year
  Sex: Male
  Weight: 77.18 kg

DRUGS (13)
  1. LEFLUNOMIDE. [Concomitant]
     Active Substance: LEFLUNOMIDE
     Indication: ARTHRITIS
  2. ASPIRIN. [Concomitant]
     Active Substance: ASPIRIN
     Indication: ANTICOAGULANT THERAPY
     Route: 065
  3. GLIPIZIDE. [Concomitant]
     Active Substance: GLIPIZIDE
     Indication: BLOOD GLUCOSE
  4. HUMIRA [Suspect]
     Active Substance: ADALIMUMAB
     Indication: ARTHRITIS REACTIVE
     Route: 058
     Dates: start: 201903, end: 201908
  5. ATORVASTATIN [Concomitant]
     Active Substance: ATORVASTATIN
     Indication: BLOOD CHOLESTEROL
  6. GABAPENTINE [Concomitant]
     Active Substance: GABAPENTIN
     Indication: BLOOD GLUCOSE
     Route: 065
  7. DILTIAZEM. [Concomitant]
     Active Substance: DILTIAZEM
     Indication: BLOOD PRESSURE MEASUREMENT
     Route: 065
  8. TAMSULOSIN [Concomitant]
     Active Substance: TAMSULOSIN
     Indication: NEPHROLITHIASIS
  9. HUMIRA [Suspect]
     Active Substance: ADALIMUMAB
     Route: 058
     Dates: start: 201908
  10. METFORMIN [Concomitant]
     Active Substance: METFORMIN HYDROCHLORIDE
     Indication: DIABETES MELLITUS
  11. ALPRAZOLAM. [Concomitant]
     Active Substance: ALPRAZOLAM
     Indication: ANXIETY
     Route: 065
  12. FINASTERIDE. [Concomitant]
     Active Substance: FINASTERIDE
     Indication: PRODUCT USED FOR UNKNOWN INDICATION
     Route: 065
  13. INDAPAMIDE. [Concomitant]
     Active Substance: INDAPAMIDE
     Indication: NEPHROLITHIASIS
     Route: 065

REACTIONS (5)
  - Tooth infection [Recovered/Resolved]
  - Incorrect dose administered [Unknown]
  - Device issue [Unknown]
  - Off label use [Unknown]
  - Tooth fracture [Recovered/Resolved]

NARRATIVE: CASE EVENT DATE: 2019
